FAERS Safety Report 4627953-0 (Version None)
Quarter: 2005Q2

REPORT INFORMATION
  Report Type: 
  Country: None (occurrence: None)
  Receive Date: 20050404
  Receipt Date: 20050404
  Transmission Date: 20051028
  Serious: Yes (Death)
  Sender: FDA-Public Use
  Company Number: None

PATIENT
  Age: 57 Year
  Sex: Female
  Weight: 49.8957 kg

DRUGS (1)
  1. HYDROXYCHLOROQUINE  200 MG     APOHYDROXYQUINE [Suspect]
     Indication: ARTHRITIS
     Dosage: NORMAL RANGE   ORAL
     Route: 048
     Dates: start: 20040301, end: 20040902

REACTIONS (5)
  - ACCIDENTAL DEATH [None]
  - MEDICATION ERROR [None]
  - OVERDOSE [None]
  - RESPIRATORY DEPRESSION [None]
  - WEIGHT DECREASED [None]
